FAERS Safety Report 7069769-4 (Version None)
Quarter: 2010Q4

REPORT INFORMATION
  Report Type: 
  Country: None (occurrence: None)
  Receive Date: 20101028
  Receipt Date: 20100524
  Transmission Date: 20110411
  Serious: No
  Sender: FDA-Public Use
  Company Number: US-WYE-H15383610

PATIENT
  Age: 78 Year
  Sex: Male
  Weight: 90.8 kg

DRUGS (3)
  1. ADVIL [Suspect]
     Indication: ARTHRALGIA
     Dosage: 1 CAPLET EVERY 4 HOURS
     Route: 048
     Dates: start: 20100522, end: 20100522
  2. PREVACID [Concomitant]
  3. FISH OIL [Concomitant]

REACTIONS (1)
  - VISION BLURRED [None]
